FAERS Safety Report 9448556 (Version 1)
Quarter: 2013Q3

REPORT INFORMATION
  Report Type: Spontaneous
  Country: US (occurrence: US)
  Receive Date: 20130808
  Receipt Date: 20130808
  Transmission Date: 20140515
  Serious: No
  Sender: FDA-Public Use
  Company Number: US-BAUSCH-BL-2012-001167

PATIENT
  Sex: Male

DRUGS (2)
  1. CROMOLYN SODIUM NASAL SOLUTION USP [Suspect]
     Indication: UPPER-AIRWAY COUGH SYNDROME
     Dosage: TWO SPRAYS IN EACH NOSTRIL DAILY
     Route: 049
     Dates: start: 20120928, end: 20120929
  2. CROMOLYN SODIUM NASAL SOLUTION USP [Suspect]
     Indication: NASAL CONGESTION

REACTIONS (1)
  - Drug ineffective [Not Recovered/Not Resolved]
